FAERS Safety Report 25118465 (Version 11)
Quarter: 2025Q3

REPORT INFORMATION
  Report Type: Spontaneous
  Country: US (occurrence: US)
  Receive Date: 20250325
  Receipt Date: 20250918
  Transmission Date: 20251020
  Serious: No
  Sender: PFIZER
  Company Number: US-PFIZER INC-202400333294

PATIENT
  Age: 40 Year
  Sex: Male

DRUGS (4)
  1. ADCETRIS [Suspect]
     Active Substance: BRENTUXIMAB VEDOTIN
     Dosage: 168 MG, EVERY 3 WEEKS
  2. ADCETRIS [Suspect]
     Active Substance: BRENTUXIMAB VEDOTIN
     Dosage: EVERY 21 DAYS (180 MG INFUSION)
     Route: 042
  3. ADCETRIS [Suspect]
     Active Substance: BRENTUXIMAB VEDOTIN
     Dosage: 180 MG, EVERY 3 WEEKS
     Route: 042
  4. ADCETRIS [Suspect]
     Active Substance: BRENTUXIMAB VEDOTIN
     Dosage: 150 MG, EVERY 3 WEEKS
     Route: 042
     Dates: start: 202412, end: 202509

REACTIONS (3)
  - Weight decreased [Not Recovered/Not Resolved]
  - Off label use [Unknown]
  - Drug effective for unapproved indication [Unknown]
